FAERS Safety Report 4757229-2 (Version None)
Quarter: 2005Q3

REPORT INFORMATION
  Report Type: 
  Country: None (occurrence: None)
  Receive Date: 20050829
  Receipt Date: 20050812
  Transmission Date: 20060218
  Serious: No
  Sender: FDA-Public Use
  Company Number: TPA2005A00926

PATIENT
  Sex: Female

DRUGS (1)
  1. ACTOS [Suspect]

REACTIONS (1)
  - POOR QUALITY DRUG ADMINISTERED [None]
